FAERS Safety Report 20112496 (Version 2)
Quarter: 2021Q4

REPORT INFORMATION
  Report Type: Spontaneous
  Country: BE (occurrence: BE)
  Receive Date: 20211125
  Receipt Date: 20211209
  Transmission Date: 20220303
  Serious: Yes (Hospitalization, Other)
  Sender: FDA-Public Use
  Company Number: BE-AMGEN-BELSP2021181329

PATIENT
  Age: 13 Year
  Sex: Male

DRUGS (4)
  1. XGEVA [Suspect]
     Active Substance: DENOSUMAB
     Indication: Bone giant cell tumour benign
     Dosage: 100 MILLIGRAM, QMO
     Route: 065
  2. XGEVA [Suspect]
     Active Substance: DENOSUMAB
     Indication: Off label use
  3. CALCIUM [Concomitant]
     Active Substance: CALCIUM
     Dosage: 1000 MILLIGRAM
  4. CHOLECALCIFEROL [Concomitant]
     Active Substance: CHOLECALCIFEROL
     Dosage: 800 IU

REACTIONS (7)
  - Rebound effect [Recovered/Resolved]
  - Acute kidney injury [Recovered/Resolved]
  - Hypercalcaemia [Recovered/Resolved]
  - Blood parathyroid hormone decreased [Recovered/Resolved]
  - Nephrocalcinosis [Unknown]
  - Drug effective for unapproved indication [Unknown]
  - Off label use [Unknown]
